FAERS Safety Report 14074665 (Version 4)
Quarter: 2017Q4

REPORT INFORMATION
  Report Type: Spontaneous
  Country: AU (occurrence: AU)
  Receive Date: 20171011
  Receipt Date: 20171013
  Transmission Date: 20180321
  Serious: Yes (Other)
  Sender: FDA-Public Use
  Company Number: PHHY2017AU148653

PATIENT
  Sex: Female

DRUGS (2)
  1. LETROZOLE. [Suspect]
     Active Substance: LETROZOLE
     Indication: PRODUCT USED FOR UNKNOWN INDICATION
     Route: 065
     Dates: start: 20170929
  2. ANASTROZOLE. [Suspect]
     Active Substance: ANASTROZOLE
     Indication: BREAST CANCER
     Route: 065
     Dates: end: 201407

REACTIONS (5)
  - Macrocytosis [Unknown]
  - Polychromasia [Unknown]
  - Pleural effusion [Unknown]
  - Platelet disorder [Unknown]
  - Stomatocytes present [Unknown]

NARRATIVE: CASE EVENT DATE: 2017
